FAERS Safety Report 24130741 (Version 2)
Quarter: 2024Q3

REPORT INFORMATION
  Report Type: Spontaneous
  Country: US (occurrence: US)
  Receive Date: 20240724
  Receipt Date: 20240802
  Transmission Date: 20241016
  Serious: Yes (Hospitalization, Other)
  Sender: BRISTOL MYERS SQUIBB
  Company Number: US-BRISTOL-MYERS SQUIBB COMPANY-2024-112902

PATIENT
  Age: 71 Year
  Sex: Male
  Weight: 65.77 kg

DRUGS (2)
  1. LENALIDOMIDE [Suspect]
     Active Substance: LENALIDOMIDE
     Indication: Plasma cell myeloma
     Dosage: TAKE 1 CAPSULE BY MOUTH EVERY DAY FOR 21 DAYS
     Route: 048
  2. DARZALEX [Concomitant]
     Active Substance: DARATUMUMAB

REACTIONS (8)
  - Pneumothorax [Recovering/Resolving]
  - Weight decreased [Unknown]
  - Pain [Unknown]
  - Nausea [Unknown]
  - Lung disorder [Unknown]
  - Constipation [Unknown]
  - Somnolence [Unknown]
  - Productive cough [Unknown]

NARRATIVE: CASE EVENT DATE: 20240601
